FAERS Safety Report 10079479 (Version 2)
Quarter: 2014Q2

REPORT INFORMATION
  Report Type: Spontaneous
  Country: US (occurrence: US)
  Receive Date: 20140415
  Receipt Date: 20140502
  Transmission Date: 20141212
  Serious: Yes (Other)
  Sender: FDA-Public Use
  Company Number: US-LUNDBECK-DKLU1098998

PATIENT
  Age: 45 Year
  Sex: Female

DRUGS (3)
  1. SABRIL     (TABLET) [Suspect]
     Indication: CONVULSION
  2. ZONEGRAN [Concomitant]
     Indication: EPILEPSY
  3. TEGRETOL [Concomitant]
     Indication: EPILEPSY

REACTIONS (2)
  - Retinal disorder [Unknown]
  - Vision blurred [Unknown]
